FAERS Safety Report 4771082-2 (Version None)
Quarter: 2005Q3

REPORT INFORMATION
  Report Type: 
  Country: None (occurrence: None)
  Receive Date: 20050914
  Receipt Date: 20050830
  Transmission Date: 20060218
  Serious: Yes (Other)
  Sender: FDA-Public Use
  Company Number: USA0508105483

PATIENT
  Age: 71 Year
  Sex: Female
  Weight: 60 kg

DRUGS (13)
  1. FORTEO [Suspect]
     Indication: OSTEOPOROSIS
     Dosage: 20 UG/1 DAY
     Dates: start: 20050324
  2. ATENOLOL [Concomitant]
  3. COLDEC [Concomitant]
  4. HYDROXYZINE [Concomitant]
  5. MECLIZINE [Concomitant]
  6. MULTI-VITAMIN [Concomitant]
  7. NASONEX [Concomitant]
  8. PREVACID [Concomitant]
  9. RANITIDINE [Concomitant]
  10. TRAMADOL [Concomitant]
  11. ZOLOFT [Concomitant]
  12. CALCIUM GLUCONATE [Concomitant]
  13. MIACALCIN [Concomitant]

REACTIONS (2)
  - DEHYDRATION [None]
  - HYPERCALCAEMIA [None]
